FAERS Safety Report 8849473 (Version 1)
Quarter: 2012Q4

REPORT INFORMATION
  Report Type: 
  Country: US (occurrence: US)
  Receive Date: 20121019
  Receipt Date: 20121019
  Transmission Date: 20130627
  Serious: Yes (Other)
  Sender: FDA-Public Use
  Company Number: GXBR2012US002170

PATIENT
  Sex: Male

DRUGS (1)
  1. TRIAMTERENE + HYDROCHLOROTHIAZIDE [Suspect]
     Dosage: UNK DF, UNK

REACTIONS (7)
  - Pulmonary mass [Unknown]
  - Cough [Recovered/Resolved]
  - Dysphonia [Recovered/Resolved]
  - Gait disturbance [Recovered/Resolved]
  - Tremor [Recovered/Resolved]
  - Renal disorder [Recovered/Resolved]
  - Head titubation [None]
